FAERS Safety Report 11378717 (Version 1)
Quarter: 2015Q3

REPORT INFORMATION
  Report Type: Spontaneous
  Country: US (occurrence: None)
  Receive Date: 20150812
  Receipt Date: 20150812
  Transmission Date: 20151125
  Serious: Yes (Hospitalization)
  Sender: FDA-Public Use
  Company Number: None

PATIENT
  Age: 70 Year
  Sex: Female
  Weight: 50.8 kg

DRUGS (2)
  1. ALIMTA [Suspect]
     Active Substance: PEMETREXED DISODIUM
     Dates: end: 20131114
  2. CISPLATIN. [Suspect]
     Active Substance: CISPLATIN
     Dates: end: 20131114

REACTIONS (2)
  - Vomiting [None]
  - Eating disorder [None]

NARRATIVE: CASE EVENT DATE: 20131121
